FAERS Safety Report 9784165 (Version 1)
Quarter: 2013Q4

REPORT INFORMATION
  Report Type: Spontaneous
  Country: RU (occurrence: RU)
  Receive Date: 20131226
  Receipt Date: 20131226
  Transmission Date: 20140711
  Serious: Yes (Other)
  Sender: FDA-Public Use
  Company Number: PHHY2013RU151141

PATIENT
  Age: 73 Year
  Sex: Female

DRUGS (3)
  1. GLIVEC [Suspect]
  2. DIABETON [Concomitant]
  3. LOZAP PLUS [Concomitant]

REACTIONS (4)
  - Mobility decreased [Recovering/Resolving]
  - Arthralgia [Recovering/Resolving]
  - Asthenia [Recovering/Resolving]
  - Constipation [Recovering/Resolving]
